FAERS Safety Report 8539851-0 (Version None)
Quarter: 2012Q3

REPORT INFORMATION
  Report Type: 
  Country: None (occurrence: None)
  Receive Date: 20120726
  Receipt Date: 20120716
  Transmission Date: 20120928
  Serious: No
  Sender: FDA-Public Use
  Company Number: US-ASTRAZENECA-2012SE49093

PATIENT
  Sex: Female

DRUGS (9)
  1. NEXIUM [Suspect]
     Route: 048
  2. NEXIUM [Suspect]
     Route: 048
  3. NEXIUM [Suspect]
     Indication: GASTRITIS
     Route: 048
  4. NEXIUM [Suspect]
     Route: 048
  5. NEXIUM [Suspect]
     Route: 048
  6. NEXIUM [Suspect]
     Indication: GASTROOESOPHAGEAL REFLUX DISEASE
     Route: 048
  7. NEXIUM [Suspect]
     Indication: PANIC ATTACK
     Route: 048
  8. SEVERAL MEDICATION [Concomitant]
  9. NEXIUM [Suspect]
     Indication: STRESS
     Route: 048

REACTIONS (2)
  - DRUG DOSE OMISSION [None]
  - GASTROINTESTINAL TRACT IRRITATION [None]
